FAERS Safety Report 6886321 (Version 4)
Quarter: 2012Q4

REPORT INFORMATION
  Report Type: 
  Country: DE (occurrence: DE)
  Receive Date: 20090120
  Receipt Date: 20120924
  Transmission Date: 20130627
  Serious: Yes (Death, Hospitalization)
  Sender: FDA-Public Use
  Company Number: DE-RANBAXY-2009RR-20545

PATIENT
  Age: 42 Year
  Sex: Male
  Weight: 86 kg

DRUGS (9)
  1. SIMVASTATIN [Suspect]
     Indication: HYPERCHOLESTEROLAEMIA
     Dosage: 20 mg, qd
     Route: 048
     Dates: start: 200807, end: 20081023
  2. IBUPROFEN [Suspect]
     Indication: BACK PAIN
     Dosage: 800 mg, UNK
     Route: 048
     Dates: start: 20081019, end: 20081021
  3. IBUPROFEN [Suspect]
     Dosage: 800 mg, UNK
     Dates: start: 20081021
  4. KATADOLON [Suspect]
     Indication: BACK PAIN
     Dosage: 200 mg, qd
     Route: 048
     Dates: start: 20080717, end: 20081016
  5. DICLAC [Suspect]
     Indication: BACK PAIN
     Dosage: 50 mg, bid
     Route: 048
     Dates: start: 20081017, end: 20081018
  6. JANUVIA [Suspect]
     Indication: TYPE 2 DIABETES MELLITUS
     Dosage: 100 mg, qd
     Route: 048
     Dates: start: 2007, end: 20081023
  7. METFORMIN [Concomitant]
     Indication: TYPE 2 DIABETES MELLITUS
     Dosage: 100 mg, bid
     Route: 048
     Dates: start: 2003, end: 20081023
  8. PANTOZOL [Concomitant]
     Indication: NAUSEA
     Dosage: 40 mg, UNK
     Route: 048
     Dates: start: 20081022, end: 20081023
  9. VIAGRA [Concomitant]
     Indication: ERECTILE DYSFUNCTION
     Dosage: 25 mg, UNK
     Route: 048
     Dates: start: 2005, end: 20081024

REACTIONS (1)
  - Hepatic enzyme increased [Recovering/Resolving]
